FAERS Safety Report 7288372-4 (Version None)
Quarter: 2011Q1

REPORT INFORMATION
  Report Type: 
  Country: None (occurrence: None)
  Receive Date: 20110211
  Receipt Date: 20110201
  Transmission Date: 20110831
  Serious: No
  Sender: FDA-Public Use
  Company Number: CH-ROCHE-756708

PATIENT
  Age: 29 Year
  Sex: Female

DRUGS (2)
  1. ROACCUTAN [Suspect]
     Indication: ACNE
     Route: 048
  2. ROACCUTAN [Suspect]
     Dosage: FREQUENCY: DOSE DECREASED TO 10 MG EVERY 2-3 DAYS.
     Route: 048
     Dates: end: 20110117

REACTIONS (2)
  - NO ADVERSE EVENT [None]
  - DRUG EXPOSURE DURING PREGNANCY [None]
